FAERS Safety Report 7956492-4 (Version None)
Quarter: 2011Q4

REPORT INFORMATION
  Report Type: 
  Country: None (occurrence: None)
  Receive Date: 20111205
  Receipt Date: 20111124
  Transmission Date: 20120403
  Serious: Yes (Hospitalization)
  Sender: FDA-Public Use
  Company Number: JP-EISAI INC-E7389-01698-SPO-JP

PATIENT
  Sex: Female

DRUGS (2)
  1. KYTRIL [Concomitant]
     Dates: start: 20111019
  2. HALAVEN [Suspect]
     Indication: BREAST CANCER RECURRENT
     Route: 042
     Dates: start: 20111019

REACTIONS (4)
  - NAUSEA [None]
  - STOMATITIS [None]
  - ONYCHOMADESIS [None]
  - FEBRILE NEUTROPENIA [None]
